FAERS Safety Report 5038572-9 (Version None)
Quarter: 2006Q2

REPORT INFORMATION
  Report Type: 
  Country: None (occurrence: None)
  Receive Date: 20060629
  Receipt Date: 20050809
  Transmission Date: 20061013
  Serious: Yes (Hospitalization)
  Sender: FDA-Public Use
  Company Number: RU-BRISTOL-MYERS SQUIBB COMPANY-13071113

PATIENT
  Age: 58 Year
  Sex: Female

DRUGS (6)
  1. BLINDED: ABATACEPT [Suspect]
     Indication: RHEUMATOID ARTHRITIS
     Route: 042
     Dates: start: 20050321
  2. BLINDED: INFLIXIMAB [Suspect]
     Indication: RHEUMATOID ARTHRITIS
     Route: 042
     Dates: start: 20050321
  3. BLINDED: PLACEBO [Suspect]
     Indication: RHEUMATOID ARTHRITIS
     Route: 042
     Dates: start: 20050321
  4. METHOTREXATE [Suspect]
     Indication: RHEUMATOID ARTHRITIS
     Route: 030
     Dates: start: 20000301, end: 20050802
  5. FOLIC ACID [Concomitant]
     Dates: start: 20000301
  6. DICLOFENAC [Concomitant]
     Dates: start: 20041215

REACTIONS (1)
  - HERPES ZOSTER [None]
